FAERS Safety Report 8795681 (Version 1)
Quarter: 2012Q4

REPORT INFORMATION
  Report Type: 
  Country: JP (occurrence: JP)
  Receive Date: 20120920
  Receipt Date: 20120920
  Transmission Date: 20130627
  Serious: Yes (Death, Life-Threatening, Other)
  Sender: FDA-Public Use
  Company Number: JP-GENZYME-THYM-1003261

PATIENT
  Age: 81 Year
  Sex: Male
  Weight: 61 kg

DRUGS (15)
  1. THYMOGLOBULINE [Suspect]
     Indication: APLASTIC ANAEMIA
     Dosage: 150 mg, qd
     Route: 065
     Dates: start: 20120521, end: 20120529
  2. CICLOSPORIN [Concomitant]
     Indication: APLASTIC ANAEMIA
     Dosage: 100 mg, bid
     Route: 048
     Dates: start: 20120516, end: 20120517
  3. CICLOSPORIN [Concomitant]
     Dosage: 75 mg, bid
     Route: 048
     Dates: start: 20120518, end: 20120521
  4. CICLOSPORIN [Concomitant]
     Dosage: 70 mg, bid
     Route: 048
     Dates: start: 20120522, end: 20120525
  5. METHYLPREDNISOLONE SODIUM SUCCINATE [Concomitant]
     Indication: PROPHYLAXIS
     Dosage: 125 mg, qd
     Route: 065
     Dates: start: 20120521, end: 20120524
  6. LANSOPRAZOLE [Concomitant]
     Indication: PRODUCT USED FOR UNKNOWN INDICATION
     Dosage: 15 mg, qd
     Route: 065
     Dates: start: 20120522, end: 20120524
  7. FEXOFENADINE HYDROCHLORIDE [Concomitant]
     Indication: PROPHYLAXIS
     Dosage: 60 mg, bid
     Route: 065
     Dates: start: 20120521, end: 20120525
  8. LEVOFLOXACIN [Concomitant]
     Indication: INFECTION PROPHYLAXIS
     Dosage: 500 mg, qd
     Route: 065
     Dates: start: 20120523, end: 20120524
  9. CILNIDIPINE [Concomitant]
     Indication: PRODUCT USED FOR UNKNOWN INDICATION
     Dosage: 10 mg, qd
     Route: 065
     Dates: start: 20120524, end: 20120525
  10. FLUCONAZOLE [Concomitant]
     Indication: INFECTION PROPHYLAXIS
     Dosage: 100 mg, qd
     Route: 065
     Dates: start: 20120508, end: 20120525
  11. ACICLOVIR [Concomitant]
     Indication: INFECTION PROPHYLAXIS
     Dosage: 200 mg, qd
     Route: 065
     Dates: start: 20120519, end: 20120529
  12. ITRACONAZOLE [Concomitant]
     Indication: INFECTION PROPHYLAXIS
     Dosage: 100 mg, once
     Route: 065
     Dates: start: 20120525, end: 20120525
  13. ALOGLIPTIN BENZOATE [Concomitant]
     Indication: PRODUCT USED FOR UNKNOWN INDICATION
     Dosage: 12.5 mg, qd
     Route: 065
     Dates: start: 20120515, end: 20120522
  14. DEFERASIROX [Concomitant]
     Indication: PRODUCT USED FOR UNKNOWN INDICATION
     Dosage: 750 mg, qd
     Route: 065
     Dates: start: 20120509, end: 20120521
  15. HYDROCORTISONE [Concomitant]
     Indication: PROPHYLAXIS
     Dosage: UNK
     Route: 065

REACTIONS (20)
  - Cardio-respiratory arrest [Fatal]
  - Pancytopenia [Unknown]
  - Pneumonia aspiration [Unknown]
  - Blood bilirubin increased [Unknown]
  - Megacolon [Unknown]
  - Pleural effusion [Unknown]
  - Ascites [Unknown]
  - Aortic aneurysm [Unknown]
  - Liver disorder [Unknown]
  - Renal disorder [Unknown]
  - Staphylococcal infection [Fatal]
  - Sepsis [Unknown]
  - Fall [Unknown]
  - Influenza like illness [Recovered/Resolved]
  - Blood pressure decreased [Unknown]
  - Vomiting [Unknown]
  - Drug-induced liver injury [None]
  - Liver abscess [None]
  - Fungal infection [None]
  - Rhabdomyolysis [None]
